FAERS Safety Report 24746995 (Version 1)
Quarter: 2024Q4

REPORT INFORMATION
  Report Type: Spontaneous
  Country: US (occurrence: US)
  Receive Date: 20241218
  Receipt Date: 20241218
  Transmission Date: 20250115
  Serious: No
  Sender: UROGEN PHARMA
  Company Number: US-UROGEN PHARMA LTD.-2024-UGN-000155

PATIENT

DRUGS (2)
  1. JELMYTO [Suspect]
     Active Substance: MITOMYCIN
     Indication: Transitional cell cancer of the renal pelvis and ureter
     Dosage: UNK INSTILLATION (ANTEGRADE)
     Dates: start: 20241010, end: 20241010
  2. JELMYTO [Suspect]
     Active Substance: MITOMYCIN
     Dosage: UNK INSTILLATION (ANTEGRADE)
     Dates: start: 20241017, end: 20241017

REACTIONS (1)
  - Urinary tract infection [Unknown]

NARRATIVE: CASE EVENT DATE: 20241001
